FAERS Safety Report 9182562 (Version 1)
Quarter: 2012Q4

REPORT INFORMATION
  Report Type: 
  Country: US (occurrence: US)
  Receive Date: 20121030
  Receipt Date: 20121030
  Transmission Date: 20130627
  Serious: No
  Sender: FDA-Public Use
  Company Number: US-B.I. PHARMACEUTICALS,INC./RIDGEFIELD-2012-BP-26291BP

PATIENT
  Age: 26 None
  Sex: Female

DRUGS (4)
  1. ZANTAC 150 (RANITIDINE HYDROCHLORIDE) [Suspect]
     Indication: DYSPEPSIA
     Dosage: 300 mg
     Route: 048
     Dates: start: 20121019
  2. XANAX [Concomitant]
     Indication: ANXIETY
     Dosage: 3 mg
     Route: 048
  3. OXYCODONE [Concomitant]
     Indication: PAIN MANAGEMENT
     Dosage: 120 mg
     Route: 048
  4. RISPERDAL [Concomitant]
     Indication: BIPOLAR DISORDER

REACTIONS (1)
  - Oedema peripheral [Not Recovered/Not Resolved]
